FAERS Safety Report 24717518 (Version 1)
Quarter: 2024Q4

REPORT INFORMATION
  Report Type: Spontaneous
  Country: US (occurrence: US)
  Receive Date: 20241210
  Receipt Date: 20241210
  Transmission Date: 20250114
  Serious: Yes (Life-Threatening, Other)
  Sender: DR REDDYS
  Company Number: US-DRL-USA-LIT/USA/24/0017863

PATIENT
  Age: 17 Year
  Sex: Male

DRUGS (4)
  1. CYCLOPHOSPHAMIDE [Suspect]
     Active Substance: CYCLOPHOSPHAMIDE
     Indication: Lupus nephritis
  2. RITUXIMAB [Suspect]
     Active Substance: RITUXIMAB
     Indication: Lupus nephritis
  3. MYCOPHENOLATE MOFETIL [Suspect]
     Active Substance: MYCOPHENOLATE MOFETIL
     Indication: Lupus nephritis
  4. BELIMUMAB [Suspect]
     Active Substance: BELIMUMAB
     Indication: Lupus nephritis

REACTIONS (8)
  - Haemophagocytic lymphohistiocytosis [Unknown]
  - Treatment failure [Unknown]
  - Respiratory failure [Unknown]
  - Generalised tonic-clonic seizure [Unknown]
  - Pancreatitis [Unknown]
  - Nephropathy [Unknown]
  - Hyperglycaemia [Unknown]
  - Product use in unapproved indication [Unknown]
